FAERS Safety Report 11622455 (Version 1)
Quarter: 2015Q4

REPORT INFORMATION
  Report Type: Spontaneous
  Country: US (occurrence: US)
  Receive Date: 20151013
  Receipt Date: 20151013
  Transmission Date: 20160304
  Serious: No
  Sender: FDA-Public Use
  Company Number: US-JNJFOC-20150314931

PATIENT
  Sex: Male
  Weight: 167.83 kg

DRUGS (4)
  1. TYLENOL [Suspect]
     Active Substance: ACETAMINOPHEN
     Route: 048
  2. TYLENOL WITH CODEINE [Concomitant]
     Active Substance: ACETAMINOPHEN\CODEINE PHOSPHATE
     Indication: PAIN
     Dosage: 300/30 MG
     Route: 048
     Dates: start: 201501
  3. TYLENOL [Suspect]
     Active Substance: ACETAMINOPHEN
     Indication: DRUG DEPENDENCE
     Dosage: OCCASIONAL USE
     Route: 048
  4. TYLENOL WITH CODEINE [Concomitant]
     Active Substance: ACETAMINOPHEN\CODEINE PHOSPHATE
     Indication: ARTHRALGIA
     Dosage: 300/30 MG
     Route: 048
     Dates: start: 201501

REACTIONS (2)
  - Product use issue [Unknown]
  - Drug administration error [Unknown]
